FAERS Safety Report 16384555 (Version 2)
Quarter: 2019Q2

REPORT INFORMATION
  Report Type: Report from Study
  Country: US (occurrence: US)
  Receive Date: 20190603
  Receipt Date: 20190619
  Transmission Date: 20190711
  Serious: Yes (Death, Hospitalization)
  Sender: FDA-Public Use
  Company Number: US-SA-2018SA127008

PATIENT
  Age: 52 Year
  Sex: Female

DRUGS (44)
  1. RANITIDINE. [Concomitant]
     Active Substance: RANITIDINE
     Dosage: 150 UNK
     Route: 048
     Dates: start: 20180327, end: 20180327
  2. GABAPENTIN. [Concomitant]
     Active Substance: GABAPENTIN
     Indication: NEURALGIA
     Dosage: 800 MG
     Route: 048
     Dates: start: 20180423, end: 20180426
  3. TOPIRAMATE. [Concomitant]
     Active Substance: TOPIRAMATE
     Dosage: 150 MG
     Route: 048
     Dates: start: 20180410
  4. SOLU-MEDROL [Concomitant]
     Active Substance: METHYLPREDNISOLONE SODIUM SUCCINATE
     Indication: PROPHYLAXIS
     Dosage: 1000 MG
     Route: 042
     Dates: start: 20170116, end: 20170120
  5. MEPERIDINE [PETHIDINE] [Concomitant]
     Active Substance: MEPERIDINE
     Dosage: 50 UNK
     Route: 048
     Dates: start: 20180327, end: 20180328
  6. ALEMTUZUMAB [Suspect]
     Active Substance: ALEMTUZUMAB
     Dosage: 4 MG,QD
     Route: 041
     Dates: start: 20170118, end: 20170118
  7. BACLOFEN. [Concomitant]
     Active Substance: BACLOFEN
     Indication: MUSCLE SPASTICITY
     Dosage: 30 MG
     Route: 048
     Dates: start: 201411
  8. CITALOPRAM [Concomitant]
     Active Substance: CITALOPRAM HYDROBROMIDE
     Dosage: 20 MG UNK
     Route: 048
     Dates: start: 20181031
  9. BECLOMETHASONE [BECLOMETASONE] [Concomitant]
     Active Substance: BECLOMETHASONE
     Indication: ASTHMA
     Dosage: 160 MCG
     Route: 065
     Dates: start: 201604, end: 20170515
  10. MEPERIDINE [PETHIDINE] [Concomitant]
     Active Substance: MEPERIDINE
     Indication: PROPHYLAXIS
     Dosage: 50 MG
     Route: 048
     Dates: start: 20170112, end: 20170131
  11. TOLTERODINE [Concomitant]
     Active Substance: TOLTERODINE
     Indication: NEUROGENIC BLADDER
     Dosage: 2 MG
     Route: 048
     Dates: start: 201608
  12. GABAPENTIN. [Concomitant]
     Active Substance: GABAPENTIN
     Indication: RESTLESS LEGS SYNDROME
     Dosage: 1200 MG
     Route: 048
     Dates: start: 201608, end: 20180422
  13. PRAMIPEXOLE. [Concomitant]
     Active Substance: PRAMIPEXOLE
     Indication: RESTLESS LEGS SYNDROME
     Dosage: 0.25 MG
     Route: 048
     Dates: start: 2014
  14. ACETAMINOPHEN. [Concomitant]
     Active Substance: ACETAMINOPHEN
     Dosage: 1000 MG
     Route: 048
     Dates: start: 20180327, end: 20180329
  15. DEMEROL [Concomitant]
     Active Substance: MEPERIDINE HYDROCHLORIDE
     Indication: PROPHYLAXIS
     Dosage: 50 MG UNK
     Route: 048
     Dates: start: 20170116, end: 20170120
  16. NORMAL SALINE [Concomitant]
     Active Substance: SODIUM CHLORIDE
     Indication: PROPHYLAXIS
     Dosage: 100 ML UNK
     Route: 042
     Dates: start: 20170116, end: 20170120
  17. OXYBUTYNIN. [Concomitant]
     Active Substance: OXYBUTYNIN CHLORIDE
     Indication: NEUROGENIC BLADDER
     Dosage: 5 MG
     Route: 048
     Dates: start: 20181029
  18. VITAMIN D3 [Concomitant]
     Active Substance: CHOLECALCIFEROL
     Indication: VITAMIN D DEFICIENCY
     Dosage: 50000 IU
     Route: 048
     Dates: start: 20161025, end: 201803
  19. ACETAMINOPHEN. [Concomitant]
     Active Substance: ACETAMINOPHEN
     Indication: PROPHYLAXIS
     Dosage: 975 MG
     Route: 048
     Dates: start: 20170116, end: 20170120
  20. ALBUTEROL SULFATE AND IPRATROPIUM BROMIDE [Concomitant]
     Active Substance: ALBUTEROL SULFATE\IPRATROPIUM BROMIDE
     Indication: ASTHMA
     Dosage: 20 MCG UNK
     Route: 065
     Dates: start: 201604, end: 20170515
  21. SOLU-MEDROL [Concomitant]
     Active Substance: METHYLPREDNISOLONE SODIUM SUCCINATE
     Indication: HEADACHE
     Dosage: MG UNK
     Route: 042
     Dates: start: 20171103, end: 20171103
  22. HYDROXYZINE [Concomitant]
     Active Substance: HYDROXYZINE HYDROCHLORIDE
     Indication: PROPHYLAXIS
     Dosage: 50 MG
     Route: 048
     Dates: start: 20170112, end: 20170131
  23. ALEMTUZUMAB [Suspect]
     Active Substance: ALEMTUZUMAB
     Dosage: 12 MG,QD
     Route: 041
     Dates: start: 20170119, end: 20170120
  24. ALEMTUZUMAB [Suspect]
     Active Substance: ALEMTUZUMAB
     Dosage: 12 MG,QD
     Route: 041
     Dates: start: 20180327, end: 20180329
  25. ZOLPIDEM [Concomitant]
     Active Substance: ZOLPIDEM\ZOLPIDEM TARTRATE
     Indication: INSOMNIA
     Dosage: 10 MG
     Route: 048
     Dates: start: 2001
  26. SOLU-MEDROL [Concomitant]
     Active Substance: METHYLPREDNISOLONE SODIUM SUCCINATE
     Dosage: 1000 MG UNK
     Route: 042
     Dates: start: 20180327, end: 20180328
  27. VISTARIL [HYDROXYZINE EMBONATE] [Concomitant]
     Indication: PROPHYLAXIS
     Dosage: 50 MG
     Route: 048
     Dates: start: 20170116, end: 20170120
  28. ZANTAC [Concomitant]
     Active Substance: RANITIDINE HYDROCHLORIDE
     Indication: PROPHYLAXIS
     Dosage: 150 MG
     Route: 048
     Dates: start: 20170116, end: 20170120
  29. IMITREX [Concomitant]
     Active Substance: SUMATRIPTAN SUCCINATE
     Indication: PROPHYLAXIS
     Dosage: 100 MG
     Route: 048
     Dates: start: 20170118, end: 20170118
  30. RANITIDINE. [Concomitant]
     Active Substance: RANITIDINE
     Indication: PROPHYLAXIS
     Dosage: 150 MG
     Route: 048
     Dates: start: 20170112, end: 20170131
  31. CLONAZEPAM. [Concomitant]
     Active Substance: CLONAZEPAM
     Indication: RESTLESS LEGS SYNDROME
     Dosage: 0.5 MG
     Route: 048
     Dates: start: 20180417
  32. VITAMIN D3 [Concomitant]
     Active Substance: CHOLECALCIFEROL
     Dosage: 4000 IU
     Route: 048
     Dates: start: 201803, end: 20181030
  33. COPAXONE [Concomitant]
     Active Substance: GLATIRAMER ACETATE
     Indication: MULTIPLE SCLEROSIS
     Dosage: UNK
     Route: 065
     Dates: start: 201607
  34. HYDROXYZINE [Concomitant]
     Active Substance: HYDROXYZINE HYDROCHLORIDE
     Dosage: 50 MG UNK
     Route: 048
     Dates: start: 20190329, end: 20190329
  35. ALBUTEROL SULFATE. [Concomitant]
     Active Substance: ALBUTEROL SULFATE
     Indication: ASTHMA
     Dosage: 2.5 MG UNK
     Route: 065
     Dates: start: 201603, end: 20170515
  36. ALEMTUZUMAB [Suspect]
     Active Substance: ALEMTUZUMAB
     Indication: MULTIPLE SCLEROSIS RELAPSE
     Dosage: 12 MG,QD
     Route: 041
     Dates: start: 20170116, end: 20170117
  37. CITALOPRAM [Concomitant]
     Active Substance: CITALOPRAM HYDROBROMIDE
     Indication: DEPRESSION
     Dosage: 40 MG
     Route: 048
     Dates: start: 201411
  38. GABAPENTIN. [Concomitant]
     Active Substance: GABAPENTIN
     Dosage: 400 MG
     Route: 048
     Dates: start: 20180427, end: 20180504
  39. GABAPENTIN. [Concomitant]
     Active Substance: GABAPENTIN
     Dosage: 900 MG MG
     Route: 048
     Dates: start: 20181114
  40. TOPIRAMATE. [Concomitant]
     Active Substance: TOPIRAMATE
     Indication: RESTLESS LEGS SYNDROME
     Dosage: 100 MG
     Route: 048
     Dates: start: 2010
  41. VITAMIN D3 [Concomitant]
     Active Substance: CHOLECALCIFEROL
     Dosage: 8000 IU
     Route: 048
     Dates: start: 20181031
  42. VALACYCLOVIR [Concomitant]
     Active Substance: VALACYCLOVIR HYDROCHLORIDE
     Indication: PROPHYLAXIS
     Dosage: 500 MG
     Route: 048
     Dates: start: 20170112
  43. HYDROXYZINE [Concomitant]
     Active Substance: HYDROXYZINE HYDROCHLORIDE
     Dosage: 50 MG UNK
     Route: 048
     Dates: start: 20180327, end: 20180328
  44. MAGNESIUM OXIDE. [Concomitant]
     Active Substance: MAGNESIUM OXIDE
     Indication: PROPHYLAXIS
     Dosage: 500 MG
     Route: 048
     Dates: start: 20180410

REACTIONS (15)
  - Oral candidiasis [Recovered/Resolved]
  - Acute kidney injury [Fatal]
  - Fall [Recovered/Resolved]
  - Sleep apnoea syndrome [Not Recovered/Not Resolved]
  - Urinary tract infection [Not Recovered/Not Resolved]
  - Arthralgia [Not Recovered/Not Resolved]
  - Back pain [Not Recovered/Not Resolved]
  - Musculoskeletal pain [Not Recovered/Not Resolved]
  - Disseminated intravascular coagulation [Fatal]
  - Syncope [Recovered/Resolved]
  - Cardiac arrest [Fatal]
  - Hyperkalaemia [Fatal]
  - Septic shock [Fatal]
  - Headache [Not Recovered/Not Resolved]
  - Neuralgia [Not Recovered/Not Resolved]

NARRATIVE: CASE EVENT DATE: 20180330
